FAERS Safety Report 6956963-3 (Version None)
Quarter: 2010Q3

REPORT INFORMATION
  Report Type: 
  Country: None (occurrence: None)
  Receive Date: 20100827
  Receipt Date: 20100827
  Transmission Date: 20110219
  Serious: Yes (Hospitalization)
  Sender: FDA-Public Use
  Company Number: None

PATIENT
  Sex: Female
  Weight: 89.6 kg

DRUGS (3)
  1. VANCOMYCIN [Suspect]
     Indication: OSTEOMYELITIS
     Dosage: 1.25 GRAMS Q36 HOURS IV
     Route: 042
     Dates: start: 20100614, end: 20100731
  2. TOBRAMYCIN [Suspect]
     Indication: CULTURE POSITIVE
     Dosage: 120MG DAILY IV
     Route: 042
     Dates: start: 20100708, end: 20100713
  3. TOBRAMYCIN [Suspect]
     Indication: KLEBSIELLA TEST POSITIVE
     Dosage: 120MG DAILY IV
     Route: 042
     Dates: start: 20100708, end: 20100713

REACTIONS (10)
  - DRUG TOXICITY [None]
  - DYSPNOEA [None]
  - ECZEMA [None]
  - HAEMODIALYSIS [None]
  - PRURITUS [None]
  - PYREXIA [None]
  - RASH ERYTHEMATOUS [None]
  - RENAL FAILURE ACUTE [None]
  - STAPHYLOCOCCUS TEST POSITIVE [None]
  - TUBULOINTERSTITIAL NEPHRITIS [None]
